FAERS Safety Report 11945111 (Version 7)
Quarter: 2017Q1

REPORT INFORMATION
  Report Type: Report from Study
  Country: FR (occurrence: FR)
  Receive Date: 20160125
  Receipt Date: 20170202
  Transmission Date: 20170428
  Serious: Yes (Hospitalization, Other)
  Sender: FDA-Public Use
  Company Number: FR-JNJFOC-20160117739

PATIENT
  Age: 73 Year
  Sex: Male
  Weight: 53 kg

DRUGS (2)
  1. DICLOFENAC [Concomitant]
     Active Substance: DICLOFENAC
     Dosage: (AT INCLUSION)
     Route: 065
  2. SIMPONI [Suspect]
     Active Substance: GOLIMUMAB
     Indication: ANKYLOSING SPONDYLITIS
     Route: 058
     Dates: start: 20150220

REACTIONS (5)
  - Retinal detachment [Recovering/Resolving]
  - Rhinitis [Unknown]
  - Mumps [Unknown]
  - Influenza [Unknown]
  - Cataract [Unknown]

NARRATIVE: CASE EVENT DATE: 201512
